FAERS Safety Report 5204593-6 (Version None)
Quarter: 2007Q1

REPORT INFORMATION
  Report Type: 
  Country: None (occurrence: None)
  Receive Date: 20070110
  Receipt Date: 20060518
  Transmission Date: 20070707
  Serious: No
  Sender: FDA-Public Use
  Company Number: US-BRISTOL-MYERS SQUIBB COMPANY-13382460

PATIENT
  Age: 61 Year
  Sex: Female
  Weight: 65 kg

DRUGS (9)
  1. ABILIFY [Suspect]
     Indication: BIPOLAR I DISORDER
     Dosage: 5/15 DOSE REDUCED TO 5 MG/D; 5/16- 5/17 DOSE WAS REDUCED TO 2.5 MG/D; THERAPY CONTINUES AT 5 MG/D.
     Route: 048
     Dates: start: 20060501
  2. THYROID TAB [Concomitant]
  3. LIPITOR [Concomitant]
  4. ATENOLOL [Concomitant]
  5. COZAAR [Concomitant]
  6. GLIPIZIDE [Concomitant]
  7. XALATAN [Concomitant]
  8. DEPAKOTE [Concomitant]
  9. METFORMIN HCL [Concomitant]

REACTIONS (1)
  - PRESYNCOPE [None]
